FAERS Safety Report 9747694 (Version 1)
Quarter: 2013Q4

REPORT INFORMATION
  Report Type: Spontaneous
  Country: CA (occurrence: CA)
  Receive Date: 20131212
  Receipt Date: 20131212
  Transmission Date: 20140711
  Serious: Yes (Other)
  Sender: FDA-Public Use
  Company Number: CA-ASTRAZENECA-2013SE89120

PATIENT
  Age: 82 Year
  Sex: Female

DRUGS (9)
  1. BRILINTA [Suspect]
     Route: 048
  2. NORVASC [Concomitant]
  3. LIPITOR [Concomitant]
  4. LASIX [Concomitant]
  5. NITRATE [Concomitant]
  6. ALDACTONE [Concomitant]
  7. METOPROLOL [Concomitant]
  8. SYNTHROID [Concomitant]
  9. HYDRALAZINE [Concomitant]

REACTIONS (2)
  - Pain in extremity [Unknown]
  - Insomnia [Unknown]
